FAERS Safety Report 21240107 (Version 2)
Quarter: 2022Q3

REPORT INFORMATION
  Report Type: Spontaneous
  Country: GB (occurrence: GB)
  Receive Date: 20220822
  Receipt Date: 20220830
  Transmission Date: 20221027
  Serious: Yes (Other)
  Sender: FDA-Public Use
  Company Number: GB-SA-SAC20220818000462

PATIENT
  Age: 56 Year
  Sex: Male

DRUGS (2)
  1. LIBTAYO [Suspect]
     Active Substance: CEMIPLIMAB-RWLC
     Indication: Squamous cell carcinoma
     Dosage: 1.65.1GY IN 30 FRACTIONS OVER 6 WEEKS
     Route: 065
  2. CISPLATIN [Concomitant]
     Active Substance: CISPLATIN
     Indication: Product used for unknown indication
     Dosage: 40MG/M2 WEEKLY
     Route: 065

REACTIONS (5)
  - Facial paralysis [Unknown]
  - Dysstasia [Unknown]
  - Cranial nerve disorder [Unknown]
  - Dysphagia [Unknown]
  - Disease progression [Unknown]
